FAERS Safety Report 9688434 (Version 1)
Quarter: 2013Q4

REPORT INFORMATION
  Report Type: Spontaneous
  Country: US (occurrence: None)
  Receive Date: 20131112
  Receipt Date: 20131112
  Transmission Date: 20140711
  Serious: No
  Sender: FDA-Public Use
  Company Number: SYM-2013-12387

PATIENT
  Age: 28 Year
  Sex: Female

DRUGS (6)
  1. WELLBUTRIN SR [Suspect]
     Indication: DEPRESSION
     Route: 048
     Dates: start: 2013
  2. WELLBUTRIN XL [Suspect]
     Indication: DEPRESSION
  3. BUPROPION HCI XL [Suspect]
     Indication: DEPRESSION
  4. KLONOPIN [Concomitant]
  5. SYNTHROID (LEVOTHYROXINE SODIUM) (LEVOTHYROXINE SODIUM) [Concomitant]
  6. TOPAMAX (TOPIRAMATE) (TOPIRAMATE) [Concomitant]

REACTIONS (4)
  - Condition aggravated [None]
  - Drug ineffective [None]
  - Depression suicidal [None]
  - Product quality issue [None]
